FAERS Safety Report 6535253-7 (Version None)
Quarter: 2010Q1

REPORT INFORMATION
  Report Type: 
  Country: None (occurrence: None)
  Receive Date: 20100113
  Receipt Date: 20100105
  Transmission Date: 20100710
  Serious: Yes (Hospitalization)
  Sender: FDA-Public Use
  Company Number: CA-ELI_LILLY_AND_COMPANY-CA201001000732

PATIENT
  Age: 79 Year
  Sex: Female

DRUGS (10)
  1. FORTEO [Suspect]
     Indication: OSTEOPOROSIS
     Dosage: 20 UG, DAILY (1/D)
     Dates: start: 20081229, end: 20091231
  2. FUROSEMIDE [Concomitant]
  3. RAMIPRIL [Concomitant]
  4. SENOKOT [Concomitant]
  5. NOVO-DOMPERIDONE [Concomitant]
  6. LEVOCARB [Concomitant]
  7. DOCUSATE SODIUM [Concomitant]
  8. CITALOPRAM [Concomitant]
  9. CALCIUM [Concomitant]
  10. VITAMIN D [Concomitant]

REACTIONS (2)
  - DIARRHOEA [None]
  - RENAL FAILURE [None]
